FAERS Safety Report 8224265-3 (Version None)
Quarter: 2012Q1

REPORT INFORMATION
  Report Type: 
  Country: None (occurrence: None)
  Receive Date: 20120321
  Receipt Date: 20120312
  Transmission Date: 20120608
  Serious: Yes (Hospitalization)
  Sender: FDA-Public Use
  Company Number: PHEH2012US005610

PATIENT
  Sex: Male

DRUGS (1)
  1. TASIGNA [Suspect]
     Dosage: 2 DF, BID
     Route: 048
     Dates: start: 20100801

REACTIONS (4)
  - TESTICULAR CYST [None]
  - PROSTATOMEGALY [None]
  - INTERVERTEBRAL DISC PROTRUSION [None]
  - TESTICULAR OEDEMA [None]
